FAERS Safety Report 5527234-7 (Version None)
Quarter: 2007Q4

REPORT INFORMATION
  Report Type: 
  Country: None (occurrence: None)
  Receive Date: 20071121
  Receipt Date: 20071115
  Transmission Date: 20080405
  Serious: Yes (Hospitalization)
  Sender: FDA-Public Use
  Company Number: FABR-12280

PATIENT
  Age: 34 Year
  Sex: Male

DRUGS (5)
  1. FABRAZYME [Suspect]
     Indication: FABRY'S DISEASE
  2. FABRAZYME [Suspect]
     Indication: FABRY'S DISEASE
     Dosage: 70 MG Q2WKS IV
     Route: 042
     Dates: start: 20040513
  3. BENADRYL [Concomitant]
  4. ZOFRAN [Concomitant]
  5. DEMEROL [Concomitant]

REACTIONS (1)
  - OVERDOSE [None]
